FAERS Safety Report 14109881 (Version 1)
Quarter: 2017Q4

REPORT INFORMATION
  Report Type: Spontaneous
  Country: US (occurrence: US)
  Receive Date: 20171020
  Receipt Date: 20171020
  Transmission Date: 20180321
  Serious: No
  Sender: FDA-Public Use
  Company Number: US-TEVA-808638USA

PATIENT
  Sex: Female

DRUGS (1)
  1. EQUATE MICONAZOLE [Suspect]
     Active Substance: MICONAZOLE
     Dosage: 200 MG/2%

REACTIONS (1)
  - Drug ineffective [Unknown]

NARRATIVE: CASE EVENT DATE: 20170915
